FAERS Safety Report 23341364 (Version 1)
Quarter: 2023Q4

REPORT INFORMATION
  Report Type: Spontaneous
  Country: CA (occurrence: CA)
  Receive Date: 20231227
  Receipt Date: 20231227
  Transmission Date: 20240110
  Serious: Yes (Other)
  Sender: FDA-Public Use
  Company Number: CA-MLMSERVICE-20231212-4252778-1

PATIENT
  Age: 68 Year
  Sex: Male

DRUGS (1)
  1. CISPLATIN [Suspect]
     Active Substance: CISPLATIN
     Indication: Non-small cell lung cancer

REACTIONS (5)
  - Hepatic artery thrombosis [Unknown]
  - Portal vein thrombosis [Unknown]
  - Splenic infarction [Unknown]
  - Splenic artery thrombosis [Unknown]
  - Hepatic infarction [Unknown]
